FAERS Safety Report 19370975 (Version 2)
Quarter: 2021Q2

REPORT INFORMATION
  Report Type: Spontaneous
  Country: IE (occurrence: IE)
  Receive Date: 20210603
  Receipt Date: 20210622
  Transmission Date: 20210717
  Serious: Yes (Life-Threatening, Hospitalization, Congenital Anomaly, Other)
  Sender: FDA-Public Use
  Company Number: IE-MACLEODS PHARMACEUTICALS US LTD-MAC2021031322

PATIENT

DRUGS (5)
  1. LABETALOL [Concomitant]
     Active Substance: LABETALOL\LABETALOL HYDROCHLORIDE
     Indication: ESSENTIAL HYPERTENSION
     Dosage: 200 MILLIGRAM, BID
     Route: 064
  2. FLUOXETINE [Concomitant]
     Active Substance: FLUOXETINE HYDROCHLORIDE
     Dosage: 20 MILLIGRAM, DOSE DECREASED
     Route: 064
  3. VALSARTAN. [Suspect]
     Active Substance: VALSARTAN
     Indication: PRODUCT USED FOR UNKNOWN INDICATION
     Dosage: UNK, EXFORGE TABLET (AMLODIPINE/VALSARTAN 5/80 MG)
     Route: 064
  4. FLUOXETINE [Concomitant]
     Active Substance: FLUOXETINE HYDROCHLORIDE
     Indication: DEPRESSION
     Dosage: 60 MILLIGRAM
     Route: 064
  5. ESOMEPRAZOLE. [Concomitant]
     Active Substance: ESOMEPRAZOLE MAGNESIUM
     Indication: GASTROOESOPHAGEAL REFLUX DISEASE
     Dosage: 40 MILLIGRAM
     Route: 064

REACTIONS (25)
  - Anuria [Recovered/Resolved]
  - Accidental exposure to product [Recovering/Resolving]
  - Tricuspid valve incompetence [Recovered/Resolved]
  - Premature baby [Recovering/Resolving]
  - Vomiting [Recovered/Resolved]
  - Extremity contracture [Recovered/Resolved]
  - Cardiopulmonary failure [Recovered/Resolved]
  - Anaemia [Recovered/Resolved]
  - Ventricular septal defect [Recovered/Resolved]
  - Ventricular dysfunction [Recovered/Resolved]
  - Oedema [Recovered/Resolved]
  - Hypertension [Recovered/Resolved]
  - Metabolic acidosis [Recovered/Resolved]
  - Atrial septal defect [Recovered/Resolved]
  - Chronic kidney disease [Recovered/Resolved]
  - Hyponatraemia [Recovered/Resolved]
  - Pneumothorax [Recovered/Resolved]
  - Foetal exposure during pregnancy [Recovered/Resolved]
  - Patent ductus arteriosus [Recovered/Resolved]
  - Intestinal malrotation [Recovered/Resolved]
  - Hypocalcaemia [Recovered/Resolved]
  - Hypoalbuminaemia [Recovered/Resolved]
  - Failure to thrive [Recovered/Resolved]
  - Toxicity to various agents [Recovered/Resolved]
  - Weight decreased [Recovered/Resolved]
